FAERS Safety Report 16723331 (Version 1)
Quarter: 2019Q3

REPORT INFORMATION
  Report Type: Spontaneous
  Country: DE (occurrence: DE)
  Receive Date: 20190821
  Receipt Date: 20190821
  Transmission Date: 20191005
  Serious: Yes (Hospitalization)
  Sender: FDA-Public Use
  Company Number: DE-TEVA-2019-DE-1094175

PATIENT
  Age: 81 Year
  Sex: Female

DRUGS (9)
  1. METAMIZOL [Concomitant]
     Active Substance: METAMIZOLE SODIUM
     Dosage: 500 MG, 1-1-1-1
  2. TRAMADOL. [Suspect]
     Active Substance: TRAMADOL
     Dosage: 100 MG/ML, MAX. IF NECESSARY 2X DAILY 8-10 GTT., DROPS
  3. CANDESARTAN. [Concomitant]
     Active Substance: CANDESARTAN
     Dosage: 16 MG, 1-0-0-0.5
  4. METOPROLOL. [Concomitant]
     Active Substance: METOPROLOL
     Dosage: 47.5 MG, 1-0-0-0, RETARD-TABLETS
  5. LERCANIDIPINE [Concomitant]
     Active Substance: LERCANIDIPINE
     Dosage: 10 MG, 1-0-1-0
  6. EDOXABAN [Concomitant]
     Active Substance: EDOXABAN TOSYLATE
     Dosage: 30 MG, 1-0-0-0
  7. FUROSEMIDE. [Concomitant]
     Active Substance: FUROSEMIDE
     Dosage: 40 MG, 0.5-0-0-0 CURRENTLY PAUSE
  8. METOPROLOL. [Concomitant]
     Active Substance: METOPROLOL
     Dosage: 23.75 MG, 0-0-0-1, RETARD-TABLETS
  9. TRAMADOL. [Suspect]
     Active Substance: TRAMADOL
     Dosage: 100 MG, ONCE ON 22.04.2018
     Route: 058

REACTIONS (2)
  - Immobile [Unknown]
  - Back pain [Unknown]
